FAERS Safety Report 4911740-X (Version None)
Quarter: 2006Q1

REPORT INFORMATION
  Report Type: 
  Country: None (occurrence: None)
  Receive Date: 20060215
  Receipt Date: 20060206
  Transmission Date: 20060701
  Serious: Yes (Hospitalization, Other)
  Sender: FDA-Public Use
  Company Number: JP-SP-2006-00287

PATIENT
  Age: 78 Year
  Sex: Male

DRUGS (1)
  1. IMMUCYST [Suspect]
     Indication: CARCINOMA IN SITU OF BLADDER
     Route: 043
     Dates: start: 20060117, end: 20060130

REACTIONS (4)
  - CONJUNCTIVITIS [None]
  - MYALGIA [None]
  - PYREXIA [None]
  - REITER'S SYNDROME [None]
